FAERS Safety Report 13718443 (Version 1)
Quarter: 2017Q3

REPORT INFORMATION
  Report Type: Spontaneous
  Country: US (occurrence: US)
  Receive Date: 20170705
  Receipt Date: 20170705
  Transmission Date: 20171127
  Serious: No
  Sender: FDA-Public Use
  Company Number: US-LYNE LABORATORIES INC.-2022925

PATIENT
  Sex: Male

DRUGS (1)
  1. ERYTHROMYCIN AND BENZOYL PEROXIDE [Suspect]
     Active Substance: BENZOYL PEROXIDE\ERYTHROMYCIN
     Indication: ACNE
     Route: 061
     Dates: start: 201612

REACTIONS (2)
  - Application site pain [Unknown]
  - Erythema [Unknown]

NARRATIVE: CASE EVENT DATE: 20161228
